FAERS Safety Report 15180508 (Version 2)
Quarter: 2018Q3

REPORT INFORMATION
  Report Type: Report from Study
  Country: IT (occurrence: IT)
  Receive Date: 20180723
  Receipt Date: 20180816
  Transmission Date: 20181010
  Serious: Yes (Hospitalization, Other)
  Sender: FDA-Public Use
  Company Number: IT-SA-2018SA195229

PATIENT
  Age: 62 Year
  Sex: Male

DRUGS (5)
  1. CLOPIDOGREL BISULFATE. [Suspect]
     Active Substance: CLOPIDOGREL BISULFATE
     Indication: ISCHAEMIC STROKE
     Dosage: 75 MG, QD
     Route: 048
     Dates: start: 20180101, end: 20180604
  2. PANTOPRAZOLE [Concomitant]
     Active Substance: PANTOPRAZOLE
     Route: 048
  3. ACETYLSALICYLIC ACID [Suspect]
     Active Substance: ASPIRIN
     Indication: ISCHAEMIC STROKE
     Dosage: 100 MG, QD
     Route: 048
     Dates: start: 20180101, end: 20180604
  4. HALOPERIDOL. [Concomitant]
     Active Substance: HALOPERIDOL
     Indication: MAJOR DEPRESSION
     Dosage: 10 DROP
     Route: 048
  5. ATORVASTATIN [Concomitant]
     Active Substance: ATORVASTATIN
     Route: 048

REACTIONS (2)
  - Melaena [Recovering/Resolving]
  - Microcytic anaemia [Recovering/Resolving]

NARRATIVE: CASE EVENT DATE: 20180604
